FAERS Safety Report 21383131 (Version 1)
Quarter: 2022Q3

REPORT INFORMATION
  Report Type: Spontaneous
  Country: US (occurrence: US)
  Receive Date: 20220927
  Receipt Date: 20220927
  Transmission Date: 20221027
  Serious: No
  Sender: FDA-Public Use
  Company Number: US-SA-SAC20220926001027

PATIENT
  Age: 62 Year
  Sex: Male
  Weight: 68.5 kg

DRUGS (1)
  1. JEVTANA [Suspect]
     Active Substance: CABAZITAXEL
     Indication: Bone cancer
     Dosage: 60 MG, Q3W
     Route: 041
     Dates: start: 20220429

REACTIONS (1)
  - Weight increased [Unknown]
